FAERS Safety Report 9618472 (Version 1)
Quarter: 2013Q4

REPORT INFORMATION
  Report Type: Spontaneous
  Country: US (occurrence: US)
  Receive Date: 20131014
  Receipt Date: 20131014
  Transmission Date: 20140711
  Serious: No
  Sender: FDA-Public Use
  Company Number: US-PFIZER INC-2013289136

PATIENT
  Age: 59 Year
  Sex: Male
  Weight: 70.3 kg

DRUGS (7)
  1. ALAVERT D-12 HOUR ALLERGY + SINUS [Suspect]
     Indication: SINUS DISORDER
     Dosage: UNK
     Route: 048
     Dates: start: 20131004
  2. ALAVERT D-12 HOUR ALLERGY + SINUS [Suspect]
     Indication: SNEEZING
  3. ALAVERT D-12 HOUR ALLERGY + SINUS [Suspect]
     Indication: HYPERSENSITIVITY
  4. TYLENOL [Suspect]
     Dosage: UNK
  5. ACTIFED [Suspect]
     Dosage: UNK
  6. CLARITIN [Suspect]
     Dosage: UNK
  7. ASPIRIN [Concomitant]
     Dosage: UNK

REACTIONS (5)
  - Dry throat [Unknown]
  - Somnolence [Unknown]
  - Dysphagia [Unknown]
  - Drug ineffective [Unknown]
  - Product taste abnormal [Unknown]
